FAERS Safety Report 6011831-9 (Version None)
Quarter: 2008Q4

REPORT INFORMATION
  Report Type: 
  Country: None (occurrence: None)
  Receive Date: 20081218
  Receipt Date: 20020109
  Transmission Date: 20090506
  Serious: No
  Sender: FDA-Public Use
  Company Number: US-ABBOTT-08P-163-0443549-00

PATIENT
  Sex: Male

DRUGS (3)
  1. MERIDIA [Suspect]
     Indication: DRUG USE FOR UNKNOWN INDICATION
     Route: 048
     Dates: end: 20011201
  2. MERIDIA [Suspect]
     Dates: start: 20011201, end: 20020101
  3. MERIDIA [Suspect]
     Dates: start: 20020101, end: 20020107

REACTIONS (4)
  - DIARRHOEA [None]
  - DRY MOUTH [None]
  - INCREASED APPETITE [None]
  - INSOMNIA [None]
